FAERS Safety Report 20512007 (Version 1)
Quarter: 2022Q1

REPORT INFORMATION
  Report Type: Spontaneous
  Country: CN (occurrence: CN)
  Receive Date: 20220224
  Receipt Date: 20220224
  Transmission Date: 20220423
  Serious: Yes (Hospitalization, Other)
  Sender: FDA-Public Use
  Company Number: CN-GLAXOSMITHKLINE-CN2022APC029701

PATIENT
  Age: 58 Year
  Sex: Male
  Weight: 55 kg

DRUGS (1)
  1. LAMICTAL [Suspect]
     Active Substance: LAMOTRIGINE
     Indication: Epilepsy
     Dosage: 50 MG, BID
     Route: 048
     Dates: start: 20220102, end: 20220204

REACTIONS (8)
  - Drug eruption [Recovered/Resolved]
  - Rash [Recovered/Resolved]
  - Eczema [Recovered/Resolved]
  - Rash macular [Recovered/Resolved]
  - Blister [Recovered/Resolved]
  - Epidermolysis bullosa [Recovered/Resolved]
  - Nikolsky^s sign [Recovered/Resolved]
  - Skin discolouration [Recovered/Resolved]

NARRATIVE: CASE EVENT DATE: 20220202
